FAERS Safety Report 25395236 (Version 3)
Quarter: 2025Q3

REPORT INFORMATION
  Report Type: Report from Study
  Country: EU (occurrence: EU)
  Receive Date: 20250604
  Receipt Date: 20250709
  Transmission Date: 20251021
  Serious: Yes (Hospitalization)
  Sender: MERCK SHARP & DOHME LLC
  Company Number: EU-AstrazenecaRSG-0501-D926QC00001(Prod)000003

PATIENT
  Age: 47 Year
  Sex: Female
  Weight: 63 kg

DRUGS (14)
  1. PEMBROLIZUMAB [Suspect]
     Active Substance: PEMBROLIZUMAB
     Indication: Triple negative breast cancer
     Dosage: 200 MG, ONCE EVERY 3 WK
     Route: 042
     Dates: start: 20241126, end: 20250127
  2. PACLITAXEL [Suspect]
     Active Substance: PACLITAXEL
     Indication: Triple negative breast cancer
     Dosage: DOSAGE: 80 MG/M2 80 MG/M2, ONCE EVERY 1 WK
     Dates: start: 20241126, end: 20250127
  3. PALONOSETRON [Concomitant]
     Active Substance: PALONOSETRON
     Indication: Premedication
     Dates: start: 20241126
  4. AMOXICILLIN [Concomitant]
     Active Substance: AMOXICILLIN
     Indication: Pyrexia
     Dosage: 1000 MG, TID
     Dates: start: 20241224, end: 20241228
  5. LEVOFLOXACIN [Concomitant]
     Active Substance: LEVOFLOXACIN
     Indication: Antibiotic prophylaxis
     Dosage: 500 MG, QD
     Dates: start: 20250112, end: 20250114
  6. PIPERACILLIN AND TAZOBACTAM [Concomitant]
     Active Substance: PIPERACILLIN SODIUM\TAZOBACTAM SODIUM
     Indication: Antibiotic prophylaxis
     Dosage: 4 G, TID
     Dates: start: 20250114
  7. DEXTROSE [Concomitant]
     Active Substance: DEXTROSE MONOHYDRATE
     Indication: Premedication
     Dates: start: 20241126
  8. POLYETHYLENE GLYCOLS [Concomitant]
     Active Substance: POLYETHYLENE GLYCOLS
     Indication: Constipation
     Dosage: 13.8 G, BID
     Dates: start: 20241209
  9. CARBOPLATIN [Suspect]
     Active Substance: CARBOPLATIN
     Indication: Triple negative breast cancer
     Dates: start: 20241126, end: 20250120
  10. SODIUM CHLORIDE [Concomitant]
     Active Substance: SODIUM CHLORIDE
     Indication: Premedication
     Dates: start: 20241126
  11. SHINGRIX [Concomitant]
     Active Substance: RECOMBINANT VARICELLA ZOSTER VIRUS (VZV) GLYCOPROTEIN E
     Indication: Prophylaxis
     Dosage: UNK UNK, SINGLE
     Dates: start: 20241107, end: 20241107
  12. ACETAMINOPHEN [Concomitant]
     Active Substance: ACETAMINOPHEN
     Indication: Pyrexia
     Dosage: 1 G, TID
     Dates: start: 20241224
  13. INFLUVAC TETRA [Concomitant]
     Active Substance: INFLUENZA VIRUS VACCINE QUADRIVALENT TYPE A+B
     Indication: Prophylaxis
     Dosage: 0.5 ML, SINGLE
     Dates: start: 20241107, end: 20241107
  14. DEXAMETHASONE [Concomitant]
     Active Substance: DEXAMETHASONE
     Indication: Prophylaxis of nausea and vomiting
     Dates: start: 20241107

REACTIONS (1)
  - Urinary tract infection [Recovered/Resolved]

NARRATIVE: CASE EVENT DATE: 20250114
